FAERS Safety Report 7647003-1 (Version None)
Quarter: 2011Q3

REPORT INFORMATION
  Report Type: 
  Country: None (occurrence: None)
  Receive Date: 20110801
  Receipt Date: 20110721
  Transmission Date: 20111222
  Serious: Yes (Other)
  Sender: FDA-Public Use
  Company Number: US-JNJFOC-20110304604

PATIENT
  Sex: Female
  Weight: 68.04 kg

DRUGS (2)
  1. ULTRAM [Suspect]
     Indication: PAIN
     Dosage: 3 TIMES A DAY
     Route: 048
     Dates: start: 20100101
  2. FENTANYL CITRATE [Suspect]
     Indication: PAIN
     Route: 062
     Dates: start: 20080101

REACTIONS (5)
  - CARDIAC DISORDER [None]
  - AMNESIA [None]
  - EXTRASYSTOLES [None]
  - DRUG INEFFECTIVE [None]
  - MALAISE [None]
